FAERS Safety Report 17418170 (Version 2)
Quarter: 2020Q2

REPORT INFORMATION
  Report Type: Report from Study
  Country: BE (occurrence: BE)
  Receive Date: 20200213
  Receipt Date: 20200421
  Transmission Date: 20200713
  Serious: Yes (Death, Life-Threatening)
  Sender: FDA-Public Use
  Company Number: BE-BAXTER-2019BAX023418

PATIENT
  Age: 54 Year
  Sex: Female

DRUGS (2)
  1. ENDOXAN 1000 MG - POUDRE POUR SOLUTION INJECTABLE [Suspect]
     Active Substance: CYCLOPHOSPHAMIDE
     Indication: PRODUCT USED FOR UNKNOWN INDICATION
     Dosage: FIRST POST-TRANSPLANT INFUSION OF CYCLOPHOSPHAMIDE (PTCY)
     Route: 065
     Dates: start: 20191018, end: 20191018
  2. ENDOXAN 1000 MG - POUDRE POUR SOLUTION INJECTABLE [Suspect]
     Active Substance: CYCLOPHOSPHAMIDE
     Dosage: SECOND POST-TRANSPLANT INFUSION OF CYCLOPHOSPHAMIDE (PTCY)
     Route: 065
     Dates: start: 20191019, end: 20191019

REACTIONS (2)
  - Cardiac failure [Recovered/Resolved with Sequelae]
  - Death [Fatal]

NARRATIVE: CASE EVENT DATE: 20191021
